FAERS Safety Report 12648087 (Version 1)
Quarter: 2016Q3

REPORT INFORMATION
  Report Type: Spontaneous
  Country: US (occurrence: US)
  Receive Date: 20160812
  Receipt Date: 20160812
  Transmission Date: 20161109
  Serious: No
  Sender: FDA-Public Use
  Company Number: US-IROKO PHARMACEUTICALS LLC-US-I09001-16-00069

PATIENT
  Sex: Male

DRUGS (2)
  1. ZORVOLEX [Suspect]
     Active Substance: DICLOFENAC
     Indication: INFLAMMATION
     Route: 065
     Dates: end: 201604
  2. ZORVOLEX [Suspect]
     Active Substance: DICLOFENAC
     Route: 065
     Dates: end: 201604

REACTIONS (2)
  - Headache [Unknown]
  - Off label use [Unknown]

NARRATIVE: CASE EVENT DATE: 20160301
